FAERS Safety Report 5022412-8 (Version None)
Quarter: 2006Q2

REPORT INFORMATION
  Report Type: 
  Country: None (occurrence: None)
  Receive Date: 20060502
  Receipt Date: 20050802
  Transmission Date: 20061013
  Serious: Yes (Other)
  Sender: FDA-Public Use
  Company Number: PHEH2005US08579

PATIENT
  Age: 88 Year
  Sex: Female

DRUGS (1)
  1. LOTREL [Suspect]
     Dosage: 5/10MG, ORAL
     Route: 048

REACTIONS (3)
  - DIZZINESS [None]
  - FALL [None]
  - UPPER LIMB FRACTURE [None]
